FAERS Safety Report 8621420-5 (Version None)
Quarter: 2012Q3

REPORT INFORMATION
  Report Type: 
  Country: None (occurrence: None)
  Receive Date: 20120824
  Receipt Date: 20120821
  Transmission Date: 20120928
  Serious: No
  Sender: FDA-Public Use
  Company Number: US-PFIZER INC-2012206202

PATIENT
  Age: 56 Year
  Sex: Female
  Weight: 108 kg

DRUGS (4)
  1. CELEBREX [Suspect]
     Indication: INFLAMMATION
     Dosage: 200 MG, DAILY
     Route: 048
     Dates: start: 20120601, end: 20120801
  2. CELEBREX [Suspect]
     Indication: ANGIOPATHY
  3. CELEBREX [Suspect]
     Indication: ARTHRITIS
  4. PRILOSEC [Concomitant]
     Indication: GASTROOESOPHAGEAL REFLUX DISEASE
     Dosage: UNK,DAILY

REACTIONS (1)
  - DERMATITIS ALLERGIC [None]
